FAERS Safety Report 4952321-1 (Version None)
Quarter: 2006Q1

REPORT INFORMATION
  Report Type: 
  Country: None (occurrence: None)
  Receive Date: 20060131
  Receipt Date: 20050125
  Transmission Date: 20060701
  Serious: Yes (Life-Threatening, Hospitalization, Other)
  Sender: FDA-Public Use
  Company Number: WAES 0501USA03634

PATIENT
  Sex: Female
  Weight: 79.8331 kg

DRUGS (1)
  1. INVANZ [Suspect]
     Indication: DIABETIC FOOT
     Dosage: 1.0 GM DAILY IV
     Route: 042
     Dates: start: 20041101, end: 20041101

REACTIONS (1)
  - CONVULSION [None]
